FAERS Safety Report 10087103 (Version 1)
Quarter: 2014Q2

REPORT INFORMATION
  Report Type: Spontaneous
  Country: US (occurrence: US)
  Receive Date: 20140418
  Receipt Date: 20140418
  Transmission Date: 20141212
  Serious: Yes (Other)
  Sender: FDA-Public Use
  Company Number: US-TEVA-476319USA

PATIENT
  Age: 41 Year
  Sex: Female
  Weight: 57.66 kg

DRUGS (1)
  1. PARAGARD 380A [Suspect]
     Indication: CONTRACEPTION
     Route: 015
     Dates: start: 200408, end: 20140306

REACTIONS (2)
  - Embedded device [Recovered/Resolved]
  - Device breakage [Recovered/Resolved]
